FAERS Safety Report 6154308-2 (Version None)
Quarter: 2009Q2

REPORT INFORMATION
  Report Type: 
  Country: None (occurrence: None)
  Receive Date: 20090414
  Receipt Date: 20090406
  Transmission Date: 20091009
  Serious: Yes (Other)
  Sender: FDA-Public Use
  Company Number: MX-KINGPHARMUSA00001-K200900402

PATIENT
  Age: 29 Year
  Sex: Male

DRUGS (1)
  1. SEPTRA [Suspect]
     Dosage: UNK

REACTIONS (6)
  - ACUTE GENERALISED EXANTHEMATOUS PUSTULOSIS [None]
  - LYMPHADENOPATHY [None]
  - PRURITUS [None]
  - PYREXIA [None]
  - SKIN EXFOLIATION [None]
  - SKIN LESION [None]
